FAERS Safety Report 9049068 (Version 1)
Quarter: 2013Q1

REPORT INFORMATION
  Report Type: Spontaneous
  Country: US (occurrence: None)
  Receive Date: 20130129
  Receipt Date: 20130129
  Transmission Date: 20140127
  Serious: Yes (Other)
  Sender: FDA-Public Use
  Company Number: None

PATIENT
  Sex: Female
  Weight: 55.34 kg

DRUGS (3)
  1. SERTRALINE [Suspect]
     Indication: AFFECTIVE DISORDER
     Dosage: 100 MG  1/2 TAB  PO  DAILY
     Route: 048
  2. SERTRALINE [Suspect]
     Indication: MENOPAUSAL SYMPTOMS
     Dosage: 100 MG  1/2 TAB  PO  DAILY
     Route: 048
  3. VALACYCLOVIR [Concomitant]

REACTIONS (7)
  - Product substitution issue [None]
  - Depression [None]
  - Feeling jittery [None]
  - Panic attack [None]
  - Insomnia [None]
  - Irritability [None]
  - Headache [None]
